FAERS Safety Report 4368621-2 (Version None)
Quarter: 2004Q2

REPORT INFORMATION
  Report Type: 
  Country: None (occurrence: None)
  Receive Date: 20040528
  Receipt Date: 20040512
  Transmission Date: 20050107
  Serious: Yes (Hospitalization)
  Sender: FDA-Public Use
  Company Number: 2004EU001011

PATIENT
  Age: 68 Year
  Sex: Female

DRUGS (1)
  1. FK506 (TACROLIMUS) CAPSULE [Suspect]
     Indication: GLOMERULONEPHRITIS FOCAL
     Dates: start: 20000101, end: 20010101

REACTIONS (1)
  - GLOSSODYNIA [None]
